FAERS Safety Report 8349549-X (Version None)
Quarter: 2012Q2

REPORT INFORMATION
  Report Type: 
  Country: None (occurrence: None)
  Receive Date: 20120508
  Receipt Date: 20120508
  Transmission Date: 20120825
  Serious: Yes (Hospitalization)
  Sender: FDA-Public Use
  Company Number: None

PATIENT
  Sex: Male
  Weight: 84 kg

DRUGS (3)
  1. RITUXIMAB (MOAB C2B8 ANTI CD20, CHIMERIC) [Suspect]
     Dosage: 713 MG
     Dates: end: 20120416
  2. FLUDARABINE PHOSPHATE [Suspect]
     Dosage: 114 MG
     Dates: end: 20120416
  3. CYCLOPHOSPHAMIDE [Suspect]
     Dosage: 870 MG
     Dates: end: 20120416

REACTIONS (1)
  - FEBRILE NEUTROPENIA [None]
